FAERS Safety Report 4742745-X (Version None)
Quarter: 2005Q3

REPORT INFORMATION
  Report Type: 
  Country: None (occurrence: None)
  Receive Date: 20050811
  Receipt Date: 20050311
  Transmission Date: 20060218
  Serious: Yes (Hospitalization, Disabling)
  Sender: FDA-Public Use
  Company Number: US-MERCK-0503USA02567

PATIENT
  Age: 61 Year
  Sex: Female
  Weight: 73 kg

DRUGS (6)
  1. VIOXX [Suspect]
     Indication: ARTHRALGIA
     Route: 048
     Dates: start: 19991214, end: 20021022
  2. NORVASC [Concomitant]
     Indication: HYPERTENSION
     Route: 065
     Dates: start: 19980403, end: 20020501
  3. PREMPRO [Concomitant]
     Route: 065
  4. FOSAMAX [Concomitant]
     Route: 065
  5. VALIUM [Concomitant]
     Indication: GENERALISED ANXIETY DISORDER
     Route: 065
     Dates: start: 19980304
  6. ASPIRIN [Concomitant]
     Route: 048

REACTIONS (5)
  - ACUTE CORONARY SYNDROME [None]
  - FALL [None]
  - JOINT INJURY [None]
  - JOINT SPRAIN [None]
  - MYOCARDIAL INFARCTION [None]
